FAERS Safety Report 7502265-6 (Version None)
Quarter: 2011Q2

REPORT INFORMATION
  Report Type: 
  Country: None (occurrence: None)
  Receive Date: 20110525
  Receipt Date: 20091009
  Transmission Date: 20111010
  Serious: Yes (Death, Hospitalization, Other)
  Sender: FDA-Public Use
  Company Number: US-BAYER-200935519NA

PATIENT
  Sex: Female
  Weight: 62 kg

DRUGS (17)
  1. LASIX [Concomitant]
     Indication: FLUID RETENTION
     Dosage: 20 MG, QD
     Route: 048
     Dates: start: 20030319, end: 20030330
  2. HEPARIN [Concomitant]
     Dosage: UNK
     Route: 042
     Dates: start: 20030402
  3. TRASYLOL [Suspect]
     Indication: CORONARY ARTERY BYPASS
     Dosage: INFUSION OF 50 ML/HOUR
     Route: 042
     Dates: start: 20030402, end: 20030402
  4. LANOXIN [Concomitant]
     Dosage: 0.125 MG, QD
     Route: 048
     Dates: start: 20030319, end: 20030326
  5. PRIMACOR [Concomitant]
     Dosage: UNK
     Route: 042
     Dates: start: 20030402
  6. TRASYLOL [Suspect]
     Dosage: 1 ML TEST DOSE
     Dates: start: 20030402
  7. FOSAMAX [Concomitant]
     Dosage: ONCE A WEEK
     Route: 048
  8. MANNITOL [Concomitant]
     Dosage: UNK
     Route: 042
     Dates: start: 20030402, end: 20030402
  9. NITROGLYCERIN [Concomitant]
     Dosage: UNK
     Route: 042
     Dates: start: 20030402
  10. TRASYLOL [Suspect]
     Indication: AORTIC VALVE REPLACEMENT
     Dosage: 10X6 UNITS PRIME
     Route: 042
     Dates: start: 20030402
  11. THROMBIN LOCAL SOLUTION [Concomitant]
     Dosage: 5000X2
     Route: 042
     Dates: start: 20030402, end: 20030402
  12. ANCEF [Concomitant]
     Dosage: 2 G, UNK
     Route: 042
     Dates: start: 20030402
  13. LEVOPHED [Concomitant]
     Dosage: UNK
     Route: 042
     Dates: start: 20030402
  14. PHENYLEPHRINE HCL [Concomitant]
     Dosage: UNK
     Route: 042
     Dates: start: 20030402, end: 20030402
  15. PROTAMINE SULFATE [Concomitant]
     Dosage: UNK
     Route: 042
     Dates: start: 20030402, end: 20030402
  16. SYNTHROID [Concomitant]
     Dosage: 100 MCG/24HR, QD
     Route: 048
  17. EPINEPHRINE [Concomitant]
     Dosage: UNK
     Route: 042
     Dates: start: 20030402

REACTIONS (14)
  - RENAL FAILURE [None]
  - INJURY [None]
  - PAIN [None]
  - DEATH [None]
  - STRESS [None]
  - EMOTIONAL DISTRESS [None]
  - ANHEDONIA [None]
  - UNEVALUABLE EVENT [None]
  - RENAL IMPAIRMENT [None]
  - CEREBROVASCULAR ACCIDENT [None]
  - MULTI-ORGAN FAILURE [None]
  - FEAR [None]
  - RENAL INJURY [None]
  - ANXIETY [None]
